FAERS Safety Report 9340507 (Version 1)
Quarter: 2013Q2

REPORT INFORMATION
  Report Type: Spontaneous
  Country: US (occurrence: US)
  Receive Date: 20130610
  Receipt Date: 20130610
  Transmission Date: 20140414
  Serious: No
  Sender: FDA-Public Use
  Company Number: US-MUTUAL PHARMACEUTICAL COMPANY, INC.-DXCY20130002

PATIENT
  Age: 56 Year
  Sex: Female
  Weight: 79.45 kg

DRUGS (1)
  1. DOXYCYCLINE HYCLATE [Suspect]
     Route: 048
     Dates: start: 20130220, end: 20130220

REACTIONS (3)
  - Dizziness [Recovered/Resolved]
  - Off label use [None]
  - Headache [Recovered/Resolved]
